FAERS Safety Report 20728119 (Version 1)
Quarter: 2022Q2

REPORT INFORMATION
  Report Type: Spontaneous
  Country: JP (occurrence: JP)
  Receive Date: 20220420
  Receipt Date: 20220420
  Transmission Date: 20220721
  Serious: Yes (Other)
  Sender: FDA-Public Use
  Company Number: JP-SUN PHARMACEUTICAL INDUSTRIES LTD-2022RR-332815

PATIENT
  Age: 36 Year
  Sex: Male

DRUGS (6)
  1. ASPIRIN [Suspect]
     Active Substance: ASPIRIN
     Indication: Arterial occlusive disease
     Dosage: UNK
     Route: 065
  2. ASPIRIN [Suspect]
     Active Substance: ASPIRIN
     Indication: Percutaneous coronary intervention
  3. WARFARIN [Suspect]
     Active Substance: WARFARIN
     Indication: Anticoagulant therapy
     Dosage: UNK
     Route: 065
  4. PRASUGREL [Suspect]
     Active Substance: PRASUGREL
     Indication: Arterial occlusive disease
     Dosage: UNK
     Route: 065
  5. PRASUGREL [Suspect]
     Active Substance: PRASUGREL
     Indication: Percutaneous coronary intervention
  6. HEPARIN [Suspect]
     Active Substance: HEPARIN SODIUM
     Indication: Percutaneous coronary intervention
     Dosage: 10,000 U/DAY
     Route: 042

REACTIONS (3)
  - Intracardiac thrombus [Unknown]
  - Mesenteric artery embolism [Recovering/Resolving]
  - Renal infarct [Recovering/Resolving]
